FAERS Safety Report 6200021-2 (Version None)
Quarter: 2009Q2

REPORT INFORMATION
  Report Type: 
  Country: None (occurrence: None)
  Receive Date: 20090522
  Receipt Date: 20090519
  Transmission Date: 20091009
  Serious: Yes (Hospitalization)
  Sender: FDA-Public Use
  Company Number: US-MERCK-0905USA02511

PATIENT
  Sex: Male

DRUGS (3)
  1. SINGULAIR [Suspect]
     Indication: ASTHMA
     Route: 048
     Dates: end: 20090501
  2. ADVAIR HFA [Concomitant]
     Route: 065
  3. XOLAIR [Concomitant]
     Route: 065

REACTIONS (1)
  - SUICIDE ATTEMPT [None]
